FAERS Safety Report 7443105-3 (Version None)
Quarter: 2011Q2

REPORT INFORMATION
  Report Type: 
  Country: None (occurrence: None)
  Receive Date: 20110428
  Receipt Date: 20110426
  Transmission Date: 20111010
  Serious: Yes (Other)
  Sender: FDA-Public Use
  Company Number: US-ABBOTT-11P-163-0721759-00

PATIENT
  Sex: Female
  Weight: 86.26 kg

DRUGS (5)
  1. DEXILANT [Concomitant]
     Indication: CROHN'S DISEASE
  2. CITALOPRAM [Concomitant]
     Indication: FIBROMYALGIA
  3. HUMIRA [Suspect]
     Indication: CROHN'S DISEASE
     Dates: start: 20091201
  4. AMITRIPTYLINE [Concomitant]
     Indication: SLEEP DISORDER THERAPY
  5. LORATADINE [Concomitant]
     Indication: HYPERSENSITIVITY

REACTIONS (3)
  - VOMITING [None]
  - BOWEL MOVEMENT IRREGULARITY [None]
  - ABDOMINAL PAIN [None]
